FAERS Safety Report 7985162-1 (Version None)
Quarter: 2011Q4

REPORT INFORMATION
  Report Type: 
  Country: None (occurrence: None)
  Receive Date: 20111216
  Receipt Date: 20111215
  Transmission Date: 20120403
  Serious: Yes (Life-Threatening)
  Sender: FDA-Public Use
  Company Number: PHHO2011PT020910

PATIENT
  Sex: Female

DRUGS (1)
  1. FTY [Suspect]
     Indication: MULTIPLE SCLEROSIS

REACTIONS (1)
  - BREAST CANCER [None]
